FAERS Safety Report 14044104 (Version 4)
Quarter: 2018Q2

REPORT INFORMATION
  Report Type: Report from Study
  Country: US (occurrence: US)
  Receive Date: 20171004
  Receipt Date: 20180405
  Transmission Date: 20180711
  Serious: Yes (Hospitalization, Disabling, Other)
  Sender: FDA-Public Use
  Company Number: US-PFIZER INC-2017345271

PATIENT
  Age: 15 Year
  Sex: Female
  Weight: 79 kg

DRUGS (18)
  1. VINCRISTINE SULFATE. [Suspect]
     Active Substance: VINCRISTINE SULFATE
     Dosage: 2 MG, DAY 43
     Route: 042
     Dates: start: 20170603, end: 20171221
  2. CYTARABINE. [Suspect]
     Active Substance: CYTARABINE
     Indication: ACUTE LYMPHOCYTIC LEUKAEMIA
     Dosage: 137.25 MG, DAILY X 4 DAYS
     Route: 042
     Dates: start: 20170505, end: 20170726
  3. THIOGUANINE [Suspect]
     Active Substance: THIOGUANINE
     Indication: ACUTE LYMPHOCYTIC LEUKAEMIA
     Dosage: 60MG FOR 6 DAYS, 40MG FOR 1 DAY, DAYS 29-42  WEEKLY
     Route: 048
     Dates: start: 20171207, end: 20171220
  4. VINCRISTINE SULFATE. [Suspect]
     Active Substance: VINCRISTINE SULFATE
     Indication: ACUTE LYMPHOCYTIC LEUKAEMIA
     Dosage: 2 MG, ON DAY 15, 22, 43, 50
     Route: 042
     Dates: start: 20170503
  5. PEGASPARGASE [Suspect]
     Active Substance: PEGASPARGASE
     Dosage: 4475 IU, DAY 43
     Route: 042
     Dates: start: 20170506, end: 20171221
  6. CYTARABINE. [Suspect]
     Active Substance: CYTARABINE
     Dosage: 137.25 MG, DAILYX4 DAYS
     Route: 042
     Dates: start: 20170829
  7. MERCAPTOPURINE. [Suspect]
     Active Substance: MERCAPTOPURINE
     Dosage: 125 MG X2 DAYS A WEEK, 100 MG X5 DAYS A WEEK
     Route: 048
     Dates: start: 20170829
  8. INCB018424 [Suspect]
     Active Substance: RUXOLITINIB
     Dosage: TABLET, 95 MG, BID DAYS 29-42
     Route: 048
     Dates: start: 20170619, end: 20171220
  9. METHOTREXATE SODIUM. [Suspect]
     Active Substance: METHOTREXATE SODIUM
     Indication: ACUTE LYMPHOCYTIC LEUKAEMIA
     Dosage: 15 MG, ON DAY 1, 8, 15, 22
     Route: 037
     Dates: start: 20170510
  10. INCB018424 [Suspect]
     Active Substance: RUXOLITINIB
     Dosage: TABLET, 90 MG, 2X/DAY
     Route: 048
     Dates: start: 20170829
  11. INCB018424 [Suspect]
     Active Substance: RUXOLITINIB
     Dosage: TABLET, 95 MG, BID DAY 1 OF INTERIM MAINTENANCE 2
     Route: 048
     Dates: start: 20180111
  12. MERCAPTOPURINE. [Suspect]
     Active Substance: MERCAPTOPURINE
     Indication: ACUTE LYMPHOCYTIC LEUKAEMIA
     Dosage: 125 MG X2 DAYS A WEEK, 100 MG X5 DAYS A WEEK
     Route: 048
     Dates: start: 20170619, end: 20170726
  13. PEGASPARGASE [Suspect]
     Active Substance: PEGASPARGASE
     Dosage: 4475 IU, DAY 2 OF INTERIMMAINTENANCE 2
     Route: 042
     Dates: start: 20180112
  14. VINCRISTINE SULFATE. [Suspect]
     Active Substance: VINCRISTINE SULFATE
     Dosage: 2 MG, DAY 50 OF DELAYED INTENSIFICATION
     Route: 042
     Dates: start: 20180112
  15. CYTARABINE. [Suspect]
     Active Substance: CYTARABINE
     Dosage: 144 MG, DAYS 30-57
     Route: 042
     Dates: start: 20170619, end: 20171217
  16. INCB018424 [Suspect]
     Active Substance: RUXOLITINIB
     Indication: ACUTE LYMPHOCYTIC LEUKAEMIA
     Dosage: 90 MG, BID
     Route: 048
     Dates: start: 20170619, end: 20170726
  17. CYCLOPHOSPHAMIDE. [Suspect]
     Active Substance: CYCLOPHOSPHAMIDE
     Indication: ACUTE LYMPHOCYTIC LEUKAEMIA
     Dosage: 1790 MG, ONCE A MONTH
     Route: 042
     Dates: start: 20170719
  18. PEGASPARGASE [Suspect]
     Active Substance: PEGASPARGASE
     Indication: ACUTE LYMPHOCYTIC LEUKAEMIA
     Dosage: 4475 IU,  ON DAYS 15 AND 93
     Route: 042
     Dates: start: 20170506

REACTIONS (8)
  - Sepsis [Recovered/Resolved]
  - Perirectal abscess [Recovered/Resolved]
  - Encopresis [Recovering/Resolving]
  - Bacterial infection [Recovered/Resolved]
  - Febrile neutropenia [Recovered/Resolved]
  - Cellulitis [Recovered/Resolved]
  - Encopresis [Recovered/Resolved]
  - Febrile neutropenia [Recovered/Resolved]

NARRATIVE: CASE EVENT DATE: 20170724
